FAERS Safety Report 22813251 (Version 4)
Quarter: 2023Q4

REPORT INFORMATION
  Report Type: Other
  Country: GB (occurrence: GB)
  Receive Date: 20230811
  Receipt Date: 20231004
  Transmission Date: 20240109
  Serious: Yes (Other)
  Sender: FDA-Public Use
  Company Number: GB-MACLEODS PHARMA EU LTD-MAC2023042856

PATIENT

DRUGS (34)
  1. ARIPIPRAZOLE [Interacting]
     Active Substance: ARIPIPRAZOLE
     Indication: Product used for unknown indication
     Dosage: UNK (INJECTION)
     Route: 030
  2. LEVOFLOXACIN [Interacting]
     Active Substance: LEVOFLOXACIN
     Indication: Infection
     Dosage: UNK
     Route: 048
  3. AMISULPRIDE [Interacting]
     Active Substance: AMISULPRIDE
     Indication: Schizophrenia
     Dosage: 400 MILLIGRAM, QD, AT NIGHT
     Route: 048
     Dates: start: 202202, end: 202304
  4. AMISULPRIDE [Interacting]
     Active Substance: AMISULPRIDE
     Dosage: 1200 MILLIGRAM, QD
     Route: 065
  5. AMISULPRIDE [Interacting]
     Active Substance: AMISULPRIDE
     Dosage: 600 MILLIGRAM, QD
     Route: 065
  6. AMISULPRIDE [Interacting]
     Active Substance: AMISULPRIDE
     Dosage: 5000 MILLIGRAM, QD
     Route: 065
  7. AMISULPRIDE [Interacting]
     Active Substance: AMISULPRIDE
     Dosage: 400 MILLIGRAM, QD, (200 MG TWO TIMES A DAY), MILPHARM BRAND
     Route: 048
  8. AMISULPRIDE [Interacting]
     Active Substance: AMISULPRIDE
     Dosage: 100 MILLIGRAM
     Route: 065
     Dates: start: 202304
  9. CIPROFLOXACIN [Interacting]
     Active Substance: CIPROFLOXACIN
     Indication: Infection
     Dosage: 500 MILLIGRAM
     Route: 048
  10. TESTOSTERONE DECANOATE\TESTOSTERONE ISOCAPROATE\TESTOSTERONE PHENYLPRO [Interacting]
     Active Substance: TESTOSTERONE DECANOATE\TESTOSTERONE ISOCAPROATE\TESTOSTERONE PHENYLPROPIONATE\TESTOSTERONE PROPIONAT
     Indication: Product used for unknown indication
     Dosage: UNK (INJECTION, EVERY 2 TO 3 WEEKS FROM PAST 7 TO 8 YEARS)
     Route: 030
  11. CETIRIZINE HYDROCHLORIDE [Concomitant]
     Active Substance: CETIRIZINE HYDROCHLORIDE
     Indication: Pruritus
     Dosage: UNK
     Route: 048
     Dates: start: 202304
  12. DIAZEPAM [Concomitant]
     Active Substance: DIAZEPAM
     Indication: Anxiety
     Dosage: UNK
     Route: 065
  13. DIAZEPAM [Concomitant]
     Active Substance: DIAZEPAM
     Indication: Stress
     Dosage: UNK
     Route: 048
     Dates: start: 20230505
  14. DOXAZOSIN [Concomitant]
     Active Substance: DOXAZOSIN MESYLATE
     Indication: Hypertension
     Dosage: 1 MILLIGRAM, BID ( 1 DOSAGE FORM BID)
     Route: 048
     Dates: start: 20230623, end: 20230626
  15. FEXOFENADINE [Concomitant]
     Active Substance: FEXOFENADINE HYDROCHLORIDE
     Indication: Pruritus
     Dosage: 120 MILLIGRAM
     Route: 048
     Dates: start: 20230413
  16. LOSARTAN [Concomitant]
     Active Substance: LOSARTAN
     Indication: Hypertension
     Dosage: 100 MILLIGRAM, QD ((LAST WEEK FROM THE TIME OF THE REPORT) (CONTINUING)
     Route: 048
     Dates: start: 20230424
  17. LOSARTAN [Concomitant]
     Active Substance: LOSARTAN
     Dosage: 25 MILLIGRAM, QD
     Route: 048
     Dates: start: 20230404, end: 20230413
  18. LOSARTAN [Concomitant]
     Active Substance: LOSARTAN
     Dosage: 50 MILLIGRAM, QD
     Route: 048
     Dates: start: 20230413
  19. LOSARTAN [Concomitant]
     Active Substance: LOSARTAN
     Dosage: 25 MILLIGRAM
     Route: 048
     Dates: start: 202304
  20. LOSARTAN [Concomitant]
     Active Substance: LOSARTAN
     Dosage: 50 MILLIGRAM
     Route: 048
  21. LOSARTAN [Concomitant]
     Active Substance: LOSARTAN
     Dosage: 100 MILLIGRAM
     Route: 048
     Dates: start: 202304
  22. MELATONIN [Concomitant]
     Active Substance: MELATONIN
     Indication: Insomnia
     Dosage: 4 MILLIGRAM, QD
     Route: 048
  23. MELATONIN [Concomitant]
     Active Substance: MELATONIN
     Dosage: 10 MILLIGRAM, BID
     Route: 048
  24. NEFOPAM [Concomitant]
     Active Substance: NEFOPAM
     Indication: Pain
     Dosage: 1 DOSAGE FORM, TID (1 IN THE MORNING 2 AT NIGHT)
     Route: 048
  25. OMEPRAZOLE [Concomitant]
     Active Substance: OMEPRAZOLE
     Indication: Infection
     Dosage: UNK
     Route: 048
  26. OMEPRAZOLE [Concomitant]
     Active Substance: OMEPRAZOLE
     Indication: Polyuria
     Dosage: UNK
     Route: 065
     Dates: start: 202305
  27. OMEPRAZOLE [Concomitant]
     Active Substance: OMEPRAZOLE
     Indication: Polyuria
     Dosage: UNK
     Route: 048
     Dates: start: 202305
  28. ACETAMINOPHEN [Concomitant]
     Active Substance: ACETAMINOPHEN
     Indication: Headache
     Dosage: 1 DOSAGE FORM, TID, (2 IN THE MORNING AND 1 AT NIGHT)
     Route: 048
  29. SPIRONOLACTONE [Concomitant]
     Active Substance: SPIRONOLACTONE
     Indication: Hypertension
     Dosage: UNK
     Route: 048
     Dates: start: 20230626
  30. Xallin Night Cream [Concomitant]
     Indication: Dry eye
     Dosage: UNK
     Route: 065
  31. Visotears solution [Concomitant]
     Indication: Dry eye
     Dosage: UNK
     Route: 065
  32. DIPHENHYDRAMINE HYDROCHLORIDE [Concomitant]
     Active Substance: DIPHENHYDRAMINE HYDROCHLORIDE
     Indication: Pruritus
     Dosage: UNK
     Route: 065
  33. RIMOXALLIN [Concomitant]
     Indication: Dry eye
     Dosage: UNK
     Route: 065
  34. CARBOMER [Concomitant]
     Active Substance: CARBOMER
     Indication: Dry eye
     Dosage: UNK
     Route: 065

REACTIONS (37)
  - Hypertension [Not Recovered/Not Resolved]
  - Erectile dysfunction [Not Recovered/Not Resolved]
  - Tendonitis [Recovered/Resolved]
  - Tendonitis [Unknown]
  - Ejaculation disorder [Not Recovered/Not Resolved]
  - Thermohypoaesthesia [Not Recovered/Not Resolved]
  - Abdominal distension [Not Recovered/Not Resolved]
  - Alopecia [Unknown]
  - Amnesia [Recovered/Resolved]
  - Anxiety [Unknown]
  - Blood pressure decreased [Recovered/Resolved]
  - Confusional state [Recovered/Resolved]
  - Dizziness [Recovered/Resolved]
  - Dry eye [Unknown]
  - Dysarthria [Recovered/Resolved]
  - Dyspepsia [Not Recovered/Not Resolved]
  - Ear pain [Unknown]
  - Feeling hot [Not Recovered/Not Resolved]
  - Hypoacusis [Not Recovered/Not Resolved]
  - Insomnia [Not Recovered/Not Resolved]
  - Memory impairment [Not Recovered/Not Resolved]
  - Oropharyngeal pain [Unknown]
  - Penile size reduced [Not Recovered/Not Resolved]
  - Polyuria [Unknown]
  - Pruritus [Unknown]
  - Rash [Unknown]
  - Sensory loss [Not Recovered/Not Resolved]
  - Sexual dysfunction [Not Recovered/Not Resolved]
  - Sleep deficit [Not Recovered/Not Resolved]
  - Stress [Unknown]
  - Tendonitis [Recovered/Resolved]
  - Tension headache [Not Recovered/Not Resolved]
  - Testicular atrophy [Recovering/Resolving]
  - Testicular pain [Not Recovered/Not Resolved]
  - Tinnitus [Unknown]
  - Weight increased [Not Recovered/Not Resolved]
  - Drug interaction [Recovered/Resolved]

NARRATIVE: CASE EVENT DATE: 20210101
